FAERS Safety Report 8532039 (Version 3)
Quarter: 2013Q2

REPORT INFORMATION
  Report Type: Spontaneous
  Country: US (occurrence: US)
  Receive Date: 20120426
  Receipt Date: 20130514
  Transmission Date: 20140414
  Serious: Yes (Death, Other)
  Sender: FDA-Public Use
  Company Number: US-ROCHE-1062660

PATIENT
  Sex: Female
  Weight: 52.21 kg

DRUGS (2)
  1. ACCUTANE [Suspect]
     Indication: ACNE CYSTIC
     Route: 065
     Dates: start: 19871016, end: 19880322
  2. INSULIN [Concomitant]

REACTIONS (10)
  - Pulmonary embolism [Fatal]
  - Immobile [Fatal]
  - Infected skin ulcer [Fatal]
  - Diabetes mellitus [Fatal]
  - Colitis ulcerative [Unknown]
  - Depression [Unknown]
  - Stress [Unknown]
  - Injury [Unknown]
  - Inflammatory bowel disease [Unknown]
  - Irritable bowel syndrome [Unknown]
